FAERS Safety Report 11911379 (Version 2)
Quarter: 2016Q1

REPORT INFORMATION
  Report Type: Spontaneous
  Country: US (occurrence: US)
  Receive Date: 20160112
  Receipt Date: 20160112
  Transmission Date: 20160526
  Serious: No
  Sender: FDA-Public Use
  Company Number: US-BAYER-2016-005682

PATIENT
  Age: 97 Year
  Sex: Female

DRUGS (18)
  1. MAGNESIUM [Concomitant]
     Active Substance: MAGNESIUM
  2. PLAQUENIL [Concomitant]
     Active Substance: HYDROXYCHLOROQUINE SULFATE
  3. VITAMIN D [Concomitant]
     Active Substance: CHOLECALCIFEROL
  4. MILK OF MAGNESIA ORIGINAL [Suspect]
     Active Substance: MAGNESIUM HYDROXIDE
     Indication: CONSTIPATION
     Dosage: 12 TABLESPOON, UNK
     Dates: start: 20160108
  5. NEURONTIN [Concomitant]
     Active Substance: GABAPENTIN
  6. MIRAPEX [Concomitant]
     Active Substance: PRAMIPEXOLE DIHYDROCHLORIDE
  7. LEVOTHYROXINE. [Concomitant]
     Active Substance: LEVOTHYROXINE
  8. TOPROL XL [Concomitant]
     Active Substance: METOPROLOL SUCCINATE
  9. STOOL SOFTENER [Concomitant]
     Active Substance: DOCUSATE CALCIUM
  10. VITAMIN B12 [Concomitant]
     Active Substance: CYANOCOBALAMIN
  11. CITRACAL [Suspect]
     Active Substance: CALCIUM CITRATE
     Dosage: UNK
  12. OMEPRAZOLE. [Concomitant]
     Active Substance: OMEPRAZOLE
  13. PREDNISONE. [Concomitant]
     Active Substance: PREDNISONE
  14. LUTEIN [Concomitant]
     Active Substance: LUTEIN
  15. LATANOPROST. [Concomitant]
     Active Substance: LATANOPROST
  16. CIPRO [Suspect]
     Active Substance: CIPROFLOXACIN HYDROCHLORIDE
     Dosage: UNK
  17. ALLOPURINOL. [Concomitant]
     Active Substance: ALLOPURINOL
  18. BRIMONIDINE [Concomitant]
     Active Substance: BRIMONIDINE TARTRATE

REACTIONS (4)
  - Fatigue [None]
  - Product use issue [Unknown]
  - Hypersensitivity [None]
  - Diarrhoea [None]

NARRATIVE: CASE EVENT DATE: 20160108
